FAERS Safety Report 9475173 (Version 2)
Quarter: 2013Q3

REPORT INFORMATION
  Report Type: Spontaneous
  Country: US (occurrence: US)
  Receive Date: 20130824
  Receipt Date: 20130824
  Transmission Date: 20140515
  Serious: Yes (Other)
  Sender: FDA-Public Use
  Company Number: PHHY2013US084030

PATIENT
  Sex: Female

DRUGS (3)
  1. BROMOCRIPTINE [Suspect]
     Indication: PROLACTINOMA
     Dosage: 2.5 MG DAILY
     Route: 048
  2. BROMOCRIPTINE [Suspect]
     Dosage: 5 MG, DAILY
     Route: 048
  3. CABERGOLINE [Suspect]
     Indication: PROLACTINOMA
     Dosage: 2.5 MG, BIW

REACTIONS (16)
  - Depressed mood [Recovering/Resolving]
  - Depressive symptom [Recovering/Resolving]
  - Disturbance in attention [Unknown]
  - Insomnia [Unknown]
  - Feeling guilty [Unknown]
  - Asthenia [Unknown]
  - Anhedonia [Recovering/Resolving]
  - Aggression [Unknown]
  - Anxiety [Unknown]
  - Irritability [Unknown]
  - Personality disorder [Unknown]
  - Compulsive shopping [Recovering/Resolving]
  - Pathological gambling [Recovering/Resolving]
  - Binge eating [Unknown]
  - Increased appetite [Unknown]
  - Headache [Recovering/Resolving]
